FAERS Safety Report 12490411 (Version 1)
Quarter: 2016Q2

REPORT INFORMATION
  Report Type: Report from Study
  Country: US (occurrence: US)
  Receive Date: 20160622
  Receipt Date: 20160622
  Transmission Date: 20160815
  Serious: Yes (Other)
  Sender: FDA-Public Use
  Company Number: US-GILEAD-2016-0219531

PATIENT
  Sex: Female

DRUGS (3)
  1. RIBAVIRIN. [Suspect]
     Active Substance: RIBAVIRIN
     Indication: PRODUCT USED FOR UNKNOWN INDICATION
     Dosage: UNK
     Route: 065
  2. SOFOSBUVIR [Suspect]
     Active Substance: SOFOSBUVIR
     Indication: HEPATITIS C VIRUS TEST POSITIVE
     Dosage: 1 DF, QD
     Route: 048
     Dates: start: 20140617, end: 20140908
  3. RIBAVIRIN. [Suspect]
     Active Substance: RIBAVIRIN
     Dosage: UNK
     Route: 065
     Dates: start: 20110617, end: 20140908

REACTIONS (7)
  - Petechiae [Not Recovered/Not Resolved]
  - Extra dose administered [Not Recovered/Not Resolved]
  - Nephrolithiasis [Recovered/Resolved]
  - Blood creatinine decreased [Unknown]
  - Back pain [Unknown]
  - Pneumothorax [Unknown]
  - Blood urea decreased [Unknown]
